FAERS Safety Report 6340521-8 (Version None)
Quarter: 2009Q3

REPORT INFORMATION
  Report Type: 
  Country: None (occurrence: None)
  Receive Date: 20090904
  Receipt Date: 20090828
  Transmission Date: 20100115
  Serious: Yes (Disabling, Other)
  Sender: FDA-Public Use
  Company Number: US-TEVA-207908USA

PATIENT
  Age: 50 Year
  Sex: Male

DRUGS (1)
  1. AMPHETAMINES [Suspect]
     Dates: end: 20090826

REACTIONS (4)
  - BLOOD PRESSURE INCREASED [None]
  - CONJUNCTIVAL HAEMORRHAGE [None]
  - EYE PAIN [None]
  - MIGRAINE [None]
